FAERS Safety Report 14347860 (Version 1)
Quarter: 2018Q1

REPORT INFORMATION
  Report Type: Spontaneous
  Country: US (occurrence: US)
  Receive Date: 20180103
  Receipt Date: 20180103
  Transmission Date: 20180509
  Serious: No
  Sender: FDA-Public Use
  Company Number: US-BAYER-2017-249735

PATIENT
  Sex: Female

DRUGS (1)
  1. MIRALAX [Suspect]
     Active Substance: POLYETHYLENE GLYCOL 3350
     Dosage: 3 DF, QD
     Route: 048

REACTIONS (6)
  - Product use issue [None]
  - Drug administration error [None]
  - Cough [Unknown]
  - Drug ineffective [Unknown]
  - Product solubility abnormal [None]
  - Product prescribing issue [Unknown]
